FAERS Safety Report 13022496 (Version 1)
Quarter: 2016Q4

REPORT INFORMATION
  Report Type: Spontaneous
  Country: IT (occurrence: IT)
  Receive Date: 20161213
  Receipt Date: 20161213
  Transmission Date: 20170207
  Serious: Yes (Other)
  Sender: FDA-Public Use
  Company Number: IT-PFIZER INC-2016569773

PATIENT
  Age: 67 Year
  Sex: Male

DRUGS (14)
  1. OXALIPLATIN. [Suspect]
     Active Substance: OXALIPLATIN
     Indication: GASTRIC CANCER
     Dosage: 251 MG, CYCLIC
     Route: 042
     Dates: start: 20150420, end: 20150511
  2. BYETTA [Concomitant]
     Active Substance: EXENATIDE
     Dosage: UNK
  3. TORVAST [Concomitant]
     Active Substance: ATORVASTATIN
     Dosage: UNK
  4. CARDIOASPIRIN [Concomitant]
     Active Substance: ASPIRIN
     Dosage: UNK
  5. UNIPRIL /00574902/ [Concomitant]
     Active Substance: ENALAPRIL MALEATE
     Dosage: UNK
  6. ATENOLOL. [Concomitant]
     Active Substance: ATENOLOL
     Dosage: UNK
  7. XELODA [Suspect]
     Active Substance: CAPECITABINE
     Indication: GASTRIC CANCER
     Dosage: 2800 MG, CYCLIC
     Route: 048
     Dates: start: 20150420, end: 20150511
  8. GLUCOPHAGE [Concomitant]
     Active Substance: METFORMIN HYDROCHLORIDE
     Dosage: UNK
  9. TARGIN [Concomitant]
     Active Substance: NALOXONE HYDROCHLORIDE\OXYCODONE HYDROCHLORIDE
  10. LANSOX [Concomitant]
     Active Substance: LANSOPRAZOLE
     Dosage: UNK
  11. SOLOSA [Concomitant]
     Active Substance: GLIMEPIRIDE
     Dosage: UNK
  12. EFFENTORA [Concomitant]
     Active Substance: FENTANYL CITRATE
     Dosage: UNK
  13. NORVASC [Concomitant]
     Active Substance: AMLODIPINE BESYLATE
     Dosage: UNK
  14. BRILIQUE [Concomitant]
     Active Substance: TICAGRELOR
     Dosage: UNK

REACTIONS (2)
  - Diarrhoea [Not Recovered/Not Resolved]
  - Renal failure [Not Recovered/Not Resolved]

NARRATIVE: CASE EVENT DATE: 20150518
